FAERS Safety Report 9063072 (Version 1)
Quarter: 2013Q1

REPORT INFORMATION
  Report Type: Report from Study
  Country: US (occurrence: US)
  Receive Date: 20130129
  Receipt Date: 20130129
  Transmission Date: 20140127
  Serious: No
  Sender: FDA-Public Use
  Company Number: US-ABBOTT-12P-163-0948706-00

PATIENT
  Age: 26 Year
  Sex: Female

DRUGS (4)
  1. HUMIRA 40 MG/0.8 ML PEN [Suspect]
     Indication: CROHN^S DISEASE
     Dates: start: 20120411
  2. IMURAN [Concomitant]
     Indication: CROHN^S DISEASE
     Dosage: 50MG 6 TABLETS A DAY
  3. PREDNISONE [Concomitant]
     Indication: CROHN^S DISEASE
     Dosage: 40MG DAILY
  4. PRENATAL VITAMINS [Concomitant]
     Indication: PROPHYLAXIS
     Dosage: DAILY

REACTIONS (1)
  - Lower respiratory tract infection [Not Recovered/Not Resolved]
